FAERS Safety Report 4922504-5 (Version None)
Quarter: 2006Q2

REPORT INFORMATION
  Report Type: 
  Country: None (occurrence: None)
  Receive Date: 20060224
  Receipt Date: 20050804
  Transmission Date: 20061013
  Serious: Yes (Congenital Anomaly)
  Sender: FDA-Public Use
  Company Number: US-ROCHE-413334

PATIENT
  Age: 1 Hour
  Sex: Male
  Weight: 0.5 kg

DRUGS (2)
  1. COPEGUS [Suspect]
     Indication: DRUG USE FOR UNKNOWN INDICATION
     Dates: start: 20050410
  2. PEGASYS [Suspect]
     Indication: DRUG USE FOR UNKNOWN INDICATION
     Dates: start: 20050410

REACTIONS (8)
  - APGAR SCORE LOW [None]
  - ATRIAL SEPTAL DEFECT [None]
  - BRADYCARDIA [None]
  - BRADYCARDIA NEONATAL [None]
  - CARDIAC MURMUR [None]
  - DRUG EXPOSURE DURING PREGNANCY [None]
  - HAEMORRHAGE INTRACRANIAL [None]
  - PREMATURE LABOUR [None]
